FAERS Safety Report 6135685-5 (Version None)
Quarter: 2009Q1

REPORT INFORMATION
  Report Type: 
  Country: None (occurrence: None)
  Receive Date: 20090327
  Receipt Date: 20090317
  Transmission Date: 20090719
  Serious: Yes (Hospitalization)
  Sender: FDA-Public Use
  Company Number: GB-AMGEN-UK338776

PATIENT
  Sex: Male

DRUGS (2)
  1. PANITUMUMAB [Suspect]
     Indication: COLORECTAL CANCER
     Route: 042
     Dates: start: 20090209, end: 20090209
  2. IRINOTECAN HCL [Suspect]
     Route: 042
     Dates: start: 20090209

REACTIONS (1)
  - TRANSIENT ISCHAEMIC ATTACK [None]
